FAERS Safety Report 5402611-3 (Version None)
Quarter: 2007Q3

REPORT INFORMATION
  Report Type: 
  Country: None (occurrence: None)
  Receive Date: 20070801
  Receipt Date: 20070221
  Transmission Date: 20080115
  Serious: No
  Sender: FDA-Public Use
  Company Number: A0640462A

PATIENT

DRUGS (1)
  1. IMITREX [Suspect]

REACTIONS (2)
  - CONFUSIONAL STATE [None]
  - FLUSHING [None]
